FAERS Safety Report 4461959-X (Version None)
Quarter: 2004Q3

REPORT INFORMATION
  Report Type: 
  Country: None (occurrence: None)
  Receive Date: 20040929
  Receipt Date: 20040922
  Transmission Date: 20050211
  Serious: Yes (Other)
  Sender: FDA-Public Use
  Company Number: AU-JNJFOC-20040907351

PATIENT
  Sex: Male

DRUGS (3)
  1. RISPERDAL CONSTA [Suspect]
     Indication: SCHIZOPHRENIA
     Route: 030
  2. VALPROATE SODIUM [Concomitant]
     Route: 049
  3. LAMOTRIGINE [Concomitant]
     Route: 049

REACTIONS (4)
  - HERPES SIMPLEX [None]
  - IMPAIRED HEALING [None]
  - LIP NEOPLASM MALIGNANT STAGE UNSPECIFIED [None]
  - MEDICATION ERROR [None]
